FAERS Safety Report 8561345-7 (Version None)
Quarter: 2012Q3

REPORT INFORMATION
  Report Type: 
  Country: None (occurrence: None)
  Receive Date: 20120802
  Receipt Date: 20120727
  Transmission Date: 20120928
  Serious: No
  Sender: FDA-Public Use
  Company Number: US-B.I. PHARMACEUTICALS,INC./RIDGEFIELD-2012-BP-17007BP

PATIENT
  Sex: Female

DRUGS (7)
  1. TRADJENTA [Suspect]
     Dosage: 5 MG
     Route: 048
     Dates: start: 20120713, end: 20120722
  2. ALLOPURINOL [Concomitant]
     Indication: GOUT
     Dosage: 100 MG
     Route: 048
  3. HUMALOG 75/25 [Concomitant]
     Indication: DIABETES MELLITUS
     Dosage: 70 U
     Route: 058
  4. ATENOLOL [Concomitant]
     Indication: HYPERTENSION
     Dosage: 100 MG
     Route: 048
  5. TRADJENTA [Suspect]
     Indication: DIABETES MELLITUS
     Dosage: 5 MG
     Route: 048
     Dates: start: 20120501, end: 20120601
  6. FUROSEMIDE [Concomitant]
     Indication: HYPERTENSION
     Dosage: 20 MG
     Route: 048
  7. LOSARTAN POTASSIUM [Concomitant]
     Indication: HYPERTENSION
     Dosage: 100 MG
     Route: 048

REACTIONS (7)
  - NASAL CONGESTION [None]
  - NAUSEA [None]
  - ABDOMINAL DISTENSION [None]
  - UPPER-AIRWAY COUGH SYNDROME [None]
  - FRONTAL SINUS OPERATION [None]
  - ABDOMINAL DISCOMFORT [None]
  - DEPRESSED LEVEL OF CONSCIOUSNESS [None]
